FAERS Safety Report 15834922 (Version 2)
Quarter: 2019Q1

REPORT INFORMATION
  Report Type: Spontaneous
  Country: DE (occurrence: DE)
  Receive Date: 20190116
  Receipt Date: 20190207
  Transmission Date: 20190417
  Serious: Yes (Other)
  Sender: FDA-Public Use
  Company Number: PHHY2019DE007033

PATIENT
  Age: 77 Year
  Sex: Female

DRUGS (4)
  1. LUCENTIS [Suspect]
     Active Substance: RANIBIZUMAB
     Indication: PRODUCT USED FOR UNKNOWN INDICATION
     Route: 065
  2. VITALUX PLUS [Suspect]
     Active Substance: VITAMINS
     Dosage: 1 DF, QD
     Route: 048
     Dates: start: 20180731
  3. CORTISON [Suspect]
     Active Substance: CORTISONE ACETATE
     Indication: PRODUCT USED FOR UNKNOWN INDICATION
     Dosage: TWO INJECTIONS
     Route: 065
  4. VITALUX PLUS [Suspect]
     Active Substance: VITAMINS
     Indication: MACULAR DEGENERATION
     Dosage: 1 DF, QD
     Route: 048
     Dates: start: 2005

REACTIONS (4)
  - Diabetes mellitus [Unknown]
  - Eye haemorrhage [Recovering/Resolving]
  - Myopia [Unknown]
  - Cataract [Recovering/Resolving]
